FAERS Safety Report 24292277 (Version 1)
Quarter: 2024Q3

REPORT INFORMATION
  Report Type: Spontaneous
  Country: US (occurrence: None)
  Receive Date: 20240906
  Receipt Date: 20240906
  Transmission Date: 20241016
  Serious: Yes (unspecified)
  Sender: Public
  Company Number: None

PATIENT
  Sex: 0

DRUGS (1)
  1. REPATHA [Suspect]
     Active Substance: EVOLOCUMAB
     Dates: start: 20240813

REACTIONS (4)
  - Muscular weakness [None]
  - Pain in extremity [None]
  - Product communication issue [None]
  - Mobility decreased [None]

NARRATIVE: CASE EVENT DATE: 20240829
